FAERS Safety Report 13905157 (Version 1)
Quarter: 2017Q3

REPORT INFORMATION
  Report Type: Report from Study
  Country: None (occurrence: DE)
  Receive Date: 20170825
  Receipt Date: 20170825
  Transmission Date: 20171127
  Serious: Yes (Other)
  Sender: FDA-Public Use
  Company Number: DE-ABBVIE-17K-062-2081895-00

PATIENT
  Age: 40 Year
  Sex: Female

DRUGS (2)
  1. HUMIRA [Suspect]
     Active Substance: ADALIMUMAB
     Indication: CROHN^S DISEASE
     Route: 058
     Dates: start: 20170809
  2. HUMIRA [Suspect]
     Active Substance: ADALIMUMAB
     Indication: ANKYLOSING SPONDYLITIS
     Route: 058
     Dates: start: 20160927, end: 201707

REACTIONS (2)
  - Periostitis [Recovering/Resolving]
  - Post procedural inflammation [Recovering/Resolving]

NARRATIVE: CASE EVENT DATE: 201707
